FAERS Safety Report 6426659-5 (Version None)
Quarter: 2009Q4

REPORT INFORMATION
  Report Type: 
  Country: None (occurrence: None)
  Receive Date: 20091028
  Receipt Date: 20091015
  Transmission Date: 20100525
  Serious: Yes (Death)
  Sender: FDA-Public Use
  Company Number: 2009284140

PATIENT

DRUGS (1)
  1. FRAGMIN [Suspect]
     Dosage: INTRAVENOUS
     Route: 042

REACTIONS (1)
  - DRUG INEFFECTIVE [None]
